FAERS Safety Report 9160317 (Version 1)
Quarter: 2013Q1

REPORT INFORMATION
  Report Type: Spontaneous
  Country: US (occurrence: US)
  Receive Date: 20130313
  Receipt Date: 20130313
  Transmission Date: 20140127
  Serious: Yes (Other)
  Sender: FDA-Public Use
  Company Number: US-PFIZER INC-2013080130

PATIENT
  Age: 61 Year
  Sex: Female
  Weight: 63.9 kg

DRUGS (1)
  1. ESTRING [Suspect]
     Indication: HORMONE REPLACEMENT THERAPY
     Dosage: UNK
     Route: 067
     Dates: start: 2006, end: 2013

REACTIONS (2)
  - Animal bite [Unknown]
  - Fungal infection [Unknown]
